FAERS Safety Report 11646915 (Version 4)
Quarter: 2015Q4

REPORT INFORMATION
  Report Type: Report from Study
  Country: BR (occurrence: BR)
  Receive Date: 20151020
  Receipt Date: 20151211
  Transmission Date: 20160304
  Serious: Yes (Life-Threatening, Other)
  Sender: FDA-Public Use
  Company Number: PHHY2015BR134900

PATIENT
  Age: 43 Year
  Sex: Female
  Weight: 73 kg

DRUGS (7)
  1. GARDENAL//PHENOBARBITAL [Suspect]
     Active Substance: PHENOBARBITAL
     Indication: SEIZURE
     Dosage: 2 TABLETS DAY
     Route: 065
  2. LEVOID [Suspect]
     Active Substance: LEVOTHYROXINE
     Indication: HYPOTHYROIDISM
     Dosage: 1 DF, QD
     Route: 048
  3. TRILEPTAL [Suspect]
     Active Substance: OXCARBAZEPINE
     Indication: SEIZURE
  4. CITALOPRAM [Suspect]
     Active Substance: CITALOPRAM HYDROBROMIDE
     Indication: DEPRESSION
     Dosage: 1 DF, QD
     Route: 048
     Dates: start: 201507
  5. TRILEPTAL [Suspect]
     Active Substance: OXCARBAZEPINE
     Indication: EPILEPSY
     Dosage: 300 MG, Q12H
     Route: 048
     Dates: start: 2015
  6. PROCIMAX [Suspect]
     Active Substance: CITALOPRAM HYDROBROMIDE
     Indication: ANXIETY
     Dosage: 1 DF, QD
     Route: 048
     Dates: start: 201507
  7. PROCIMAX [Suspect]
     Active Substance: CITALOPRAM HYDROBROMIDE
     Indication: DEPRESSION

REACTIONS (23)
  - Nasal discomfort [Recovered/Resolved]
  - Chills [Recovered/Resolved]
  - Apparent death [Recovered/Resolved]
  - Hepatomegaly [Recovering/Resolving]
  - Pain [Recovering/Resolving]
  - Burning sensation [Recovered/Resolved]
  - Erythema [Recovered/Resolved]
  - Blood cholesterol increased [Recovering/Resolving]
  - Skin irritation [Recovering/Resolving]
  - Drug interaction [Unknown]
  - Weight increased [Not Recovered/Not Resolved]
  - Rhinitis [Recovering/Resolving]
  - Mucosal inflammation [Unknown]
  - Pyrexia [Recovered/Resolved]
  - Swelling face [Recovered/Resolved]
  - Pruritus [Not Recovered/Not Resolved]
  - Rhinorrhoea [Recovering/Resolving]
  - Decreased immune responsiveness [Recovered/Resolved]
  - Wound [Recovering/Resolving]
  - Eye pruritus [Recovered/Resolved]
  - Seizure [Not Recovered/Not Resolved]
  - Blister [Recovering/Resolving]
  - Abdominal pain [Recovering/Resolving]

NARRATIVE: CASE EVENT DATE: 201506
